FAERS Safety Report 18527426 (Version 1)
Quarter: 2020Q4

REPORT INFORMATION
  Report Type: Spontaneous
  Country: US (occurrence: US)
  Receive Date: 20201119
  Receipt Date: 20201119
  Transmission Date: 20210114
  Serious: Yes (Hospitalization)
  Sender: FDA-Public Use
  Company Number: None

PATIENT
  Age: 65 Year
  Sex: Female

DRUGS (1)
  1. VERZENIO [Suspect]
     Active Substance: ABEMACICLIB
     Indication: BREAST CANCER FEMALE
     Route: 048
     Dates: start: 20201016

REACTIONS (4)
  - Pulmonary oedema [None]
  - Lung neoplasm malignant [None]
  - Pneumonia [None]
  - Thrombosis [None]

NARRATIVE: CASE EVENT DATE: 20201024
